FAERS Safety Report 12881531 (Version 3)
Quarter: 2018Q2

REPORT INFORMATION
  Report Type: Spontaneous
  Country: US (occurrence: US)
  Receive Date: 20161025
  Receipt Date: 20180610
  Transmission Date: 20180711
  Serious: No
  Sender: FDA-Public Use
  Company Number: US-JNJFOC-20161012349

PATIENT
  Age: 9 Year
  Sex: Male

DRUGS (3)
  1. RISPERDAL [Suspect]
     Active Substance: RISPERIDONE
     Indication: ATTENTION DEFICIT/HYPERACTIVITY DISORDER
     Dosage: VARYING DOSE OF 0.25 MG TO 0.5 MG.
     Route: 048
     Dates: start: 201001, end: 201401
  2. RISPERDAL [Suspect]
     Active Substance: RISPERIDONE
     Indication: NEUROSIS
     Dosage: VARYING DOSE OF 0.25 MG TO 0.5 MG.
     Route: 048
     Dates: start: 201001, end: 201401
  3. RISPERDAL [Suspect]
     Active Substance: RISPERIDONE
     Indication: SEIZURE
     Dosage: VARYING DOSE OF 0.25 MG TO 0.5 MG.
     Route: 048
     Dates: start: 201001, end: 201401

REACTIONS (4)
  - Product use in unapproved indication [Unknown]
  - Gynaecomastia [Not Recovered/Not Resolved]
  - Abnormal weight gain [Unknown]
  - Off label use [Unknown]

NARRATIVE: CASE EVENT DATE: 201001
